FAERS Safety Report 20532490 (Version 2)
Quarter: 2022Q1

REPORT INFORMATION
  Report Type: Spontaneous
  Country: US (occurrence: US)
  Receive Date: 20220301
  Receipt Date: 20220308
  Transmission Date: 20220423
  Serious: Yes (Other)
  Sender: FDA-Public Use
  Company Number: US-PFIZER INC-202200295094

PATIENT
  Age: 8 Decade
  Sex: Male

DRUGS (4)
  1. TOBRAMYCIN [Suspect]
     Active Substance: TOBRAMYCIN
     Dosage: 9.6 G OF TOBRAMYCIN WAS USED IN THE CEMENT AND 4.8 G IN THE BEADS FOR A TOTAL OF 14.4 G
  2. VANCOMYCIN HYDROCHLORIDE [Suspect]
     Active Substance: VANCOMYCIN HYDROCHLORIDE
     Dosage: UNK
     Route: 042
  3. CEFEPIME [Concomitant]
     Active Substance: CEFEPIME HYDROCHLORIDE
     Dosage: UNK
  4. GENTAMICIN [Concomitant]
     Active Substance: GENTAMICIN
     Dosage: 1.5 G

REACTIONS (1)
  - Acute kidney injury [Recovered/Resolved]
